FAERS Safety Report 7942926-8 (Version None)
Quarter: 2011Q4

REPORT INFORMATION
  Report Type: 
  Country: None (occurrence: None)
  Receive Date: 20111128
  Receipt Date: 20111122
  Transmission Date: 20120403
  Serious: Yes (Disabling)
  Sender: FDA-Public Use
  Company Number: US-MERCK-1109USA02254

PATIENT
  Age: 73 Year
  Sex: Male
  Weight: 84 kg

DRUGS (7)
  1. PROSCAR [Suspect]
     Route: 048
     Dates: start: 20110901
  2. PROSCAR [Suspect]
     Route: 048
     Dates: start: 20101201, end: 20110801
  3. PROSCAR [Suspect]
     Route: 048
     Dates: start: 20110901
  4. ALBUTEROL [Concomitant]
     Route: 055
  5. PROSCAR [Suspect]
     Indication: BENIGN PROSTATIC HYPERPLASIA
     Route: 048
     Dates: start: 20101201, end: 20110801
  6. CORTICOSTEROIDS (UNSPECIFIED) [Concomitant]
     Route: 055
  7. FUROSEMIDE [Concomitant]
     Route: 065

REACTIONS (2)
  - PARKINSON'S DISEASE [None]
  - NAUSEA [None]
